FAERS Safety Report 15159438 (Version 1)
Quarter: 2018Q3

REPORT INFORMATION
  Report Type: Spontaneous
  Country: US (occurrence: US)
  Receive Date: 20180620
  Receipt Date: 20180620
  Transmission Date: 20181010
  Serious: Yes (Hospitalization)
  Sender: FDA-Public Use
  Company Number: None

PATIENT
  Age: 59 Year
  Sex: Female
  Weight: 87.7 kg

DRUGS (8)
  1. ATIVAN [Concomitant]
     Active Substance: LORAZEPAM
  2. PERCOCET [Concomitant]
     Active Substance: ACETAMINOPHEN\OXYCODONE HYDROCHLORIDE
  3. XARELTO [Concomitant]
     Active Substance: RIVAROXABAN
  4. AURANOFIN [Suspect]
     Active Substance: AURANOFIN
     Indication: OVARIAN CANCER
     Route: 048
     Dates: start: 20180606, end: 20180610
  5. GABAPENTIN. [Concomitant]
     Active Substance: GABAPENTIN
  6. SIROLIMUS. [Suspect]
     Active Substance: SIROLIMUS
     Indication: OVARIAN CANCER
     Route: 048
     Dates: start: 20180606, end: 20180610
  7. MAG?OX [Concomitant]
     Active Substance: MAGNESIUM OXIDE
  8. GLYCOLAX [Concomitant]
     Active Substance: POLYETHYLENE GLYCOL 3350

REACTIONS (8)
  - Small intestinal obstruction [None]
  - Ascites [None]
  - Paracentesis [None]
  - Dysuria [None]
  - Gastrooesophageal reflux disease [None]
  - Nausea [None]
  - Duodenal stenosis [None]
  - Vomiting [None]

NARRATIVE: CASE EVENT DATE: 20180611
